FAERS Safety Report 20981492 (Version 3)
Quarter: 2023Q1

REPORT INFORMATION
  Report Type: Report from Study
  Country: CA (occurrence: CA)
  Receive Date: 20220620
  Receipt Date: 20230322
  Transmission Date: 20230417
  Serious: Yes (Hospitalization)
  Sender: FDA-Public Use
  Company Number: CA-NOVARTISPH-NVSC2022CA138502

PATIENT
  Age: 66 Year
  Sex: Male

DRUGS (3)
  1. RITUXIMAB [Suspect]
     Active Substance: RITUXIMAB
     Indication: Immune thrombocytopenia
     Dosage: 375 MG/M2, QW (FOR 4 WEEKS)
     Route: 065
     Dates: start: 20220301, end: 20220331
  2. RITUXIMAB [Suspect]
     Active Substance: RITUXIMAB
     Dosage: 375.0 MG/M2
     Route: 065
  3. DEXAMETHASONE [Suspect]
     Active Substance: DEXAMETHASONE
     Indication: Immune thrombocytopenia
     Dosage: 40 MG, QD
     Route: 048

REACTIONS (2)
  - Platelet count decreased [Unknown]
  - Drug ineffective for unapproved indication [Unknown]
